FAERS Safety Report 11664931 (Version 3)
Quarter: 2015Q4

REPORT INFORMATION
  Report Type: Spontaneous
  Country: JP (occurrence: JP)
  Receive Date: 20151027
  Receipt Date: 20151120
  Transmission Date: 20160304
  Serious: Yes (Hospitalization)
  Sender: FDA-Public Use
  Company Number: JP-EISAI MEDICAL RESEARCH-EC-2015-011495

PATIENT
  Age: 54 Year
  Sex: Female
  Weight: 53 kg

DRUGS (1)
  1. RABECURE [Suspect]
     Active Substance: RABEPRAZOLE SODIUM
     Indication: HELICOBACTER INFECTION
     Route: 048
     Dates: start: 20150711, end: 20150717

REACTIONS (1)
  - Erythema multiforme [Recovered/Resolved]

NARRATIVE: CASE EVENT DATE: 20150713
